FAERS Safety Report 6026035-3 (Version None)
Quarter: 2009Q1

REPORT INFORMATION
  Report Type: 
  Country: None (occurrence: None)
  Receive Date: 20090102
  Receipt Date: 20081202
  Transmission Date: 20090719
  Serious: No
  Sender: FDA-Public Use
  Company Number: US-BAYER-200839828NA

PATIENT
  Sex: Female

DRUGS (1)
  1. CIPRO [Suspect]
     Indication: UNEVALUABLE EVENT
     Route: 065

REACTIONS (3)
  - BURNING SENSATION [None]
  - RASH [None]
  - TINNITUS [None]
